FAERS Safety Report 16058522 (Version 1)
Quarter: 2019Q1

REPORT INFORMATION
  Report Type: Spontaneous
  Country: NL (occurrence: NL)
  Receive Date: 20190311
  Receipt Date: 20190311
  Transmission Date: 20190418
  Serious: Yes (Life-Threatening, Disabling, Other)
  Sender: FDA-Public Use
  Company Number: NL-GLAXOSMITHKLINE-NL2019042695

PATIENT
  Age: 71 Year
  Sex: Male
  Weight: 81 kg

DRUGS (2)
  1. ANORO ELLIPTA [Suspect]
     Active Substance: UMECLIDINIUM BROMIDE\VILANTEROL TRIFENATATE
     Indication: ASBESTOSIS
     Dosage: ONCE DAILY 1 DOSIS
     Route: 055
     Dates: start: 20190214
  2. ENALAPRIL [Concomitant]
     Active Substance: ENALAPRIL
     Dosage: ONCE DAILY (USED FOR A LONG TIME)
     Route: 055

REACTIONS (3)
  - Ventricular fibrillation [Recovering/Resolving]
  - Torsade de pointes [Recovering/Resolving]
  - Cardiac arrest [Recovering/Resolving]

NARRATIVE: CASE EVENT DATE: 20190216
